FAERS Safety Report 19808012 (Version 1)
Quarter: 2021Q3

REPORT INFORMATION
  Report Type: Other
  Country: JP (occurrence: JP)
  Receive Date: 20210908
  Receipt Date: 20210908
  Transmission Date: 20211014
  Serious: Yes (Hospitalization, Other)
  Sender: FDA-Public Use
  Company Number: JP-ROCHE-2754988

PATIENT
  Age: 55 Year
  Sex: Male
  Weight: 50 kg

DRUGS (14)
  1. ATEZOLIZUMAB. [Suspect]
     Active Substance: ATEZOLIZUMAB
     Route: 041
     Dates: start: 20210104, end: 20210104
  2. BEVACIZUMAB. [Suspect]
     Active Substance: BEVACIZUMAB
     Indication: LUNG ADENOCARCINOMA
     Route: 041
     Dates: start: 20201202, end: 20201202
  3. BEVACIZUMAB. [Suspect]
     Active Substance: BEVACIZUMAB
     Route: 041
     Dates: start: 20210104, end: 20210104
  4. PACLITAXEL. [Suspect]
     Active Substance: PACLITAXEL
     Route: 041
     Dates: end: 20210215
  5. THYRADIN [Suspect]
     Active Substance: LEVOTHYROXINE
     Indication: HYPOPARATHYROIDISM
     Route: 048
     Dates: start: 19981001
  6. CARBOPLATIN. [Suspect]
     Active Substance: CARBOPLATIN
     Route: 041
     Dates: start: 20210104, end: 20210104
  7. ATEZOLIZUMAB. [Suspect]
     Active Substance: ATEZOLIZUMAB
     Route: 065
     Dates: start: 2021, end: 20210816
  8. ATEZOLIZUMAB. [Suspect]
     Active Substance: ATEZOLIZUMAB
     Indication: LUNG ADENOCARCINOMA
     Route: 041
     Dates: start: 20201202, end: 20201202
  9. BEVACIZUMAB. [Suspect]
     Active Substance: BEVACIZUMAB
     Route: 041
     Dates: start: 2021, end: 20210816
  10. CARBOPLATIN. [Suspect]
     Active Substance: CARBOPLATIN
     Indication: LUNG ADENOCARCINOMA
     Route: 041
     Dates: start: 20201202, end: 20201202
  11. PACLITAXEL. [Suspect]
     Active Substance: PACLITAXEL
     Indication: LUNG ADENOCARCINOMA
     Route: 041
     Dates: start: 20201202, end: 20201202
  12. PACLITAXEL. [Suspect]
     Active Substance: PACLITAXEL
     Route: 041
     Dates: start: 20210104, end: 20210104
  13. CALCIUM LACTATE [Suspect]
     Active Substance: CALCIUM LACTATE
     Indication: HYPOPARATHYROIDISM
     Route: 048
     Dates: start: 19981001
  14. CARBOPLATIN. [Suspect]
     Active Substance: CARBOPLATIN
     Route: 041
     Dates: end: 20210215

REACTIONS (21)
  - Insomnia [Unknown]
  - Pyrexia [Recovered/Resolved]
  - Gastric cancer [Recovered/Resolved]
  - Arthralgia [Unknown]
  - Hepatic function abnormal [Recovered/Resolved]
  - Oral mucosal eruption [Recovering/Resolving]
  - Peripheral sensory neuropathy [Unknown]
  - Rash [Unknown]
  - Haemorrhoids [Unknown]
  - Hypocalcaemia [Unknown]
  - Arthralgia [Recovering/Resolving]
  - Colitis [Unknown]
  - Glaucoma [Unknown]
  - Glossodynia [Unknown]
  - Stomatitis [Recovering/Resolving]
  - Hypomagnesaemia [Unknown]
  - Rash [Recovering/Resolving]
  - Pruritus [Unknown]
  - Head discomfort [Recovering/Resolving]
  - Pneumonia [Recovered/Resolved]
  - Urticaria [Recovering/Resolving]

NARRATIVE: CASE EVENT DATE: 20201206
